FAERS Safety Report 19383271 (Version 5)
Quarter: 2021Q2

REPORT INFORMATION
  Report Type: Report from Study
  Country: IS (occurrence: IS)
  Receive Date: 20210608
  Receipt Date: 20210625
  Transmission Date: 20210717
  Serious: Yes (Death, Life-Threatening)
  Sender: FDA-Public Use
  Company Number: IS-AMGEN INC.-ISLCT2021085807

PATIENT
  Age: 41 Year
  Sex: Female

DRUGS (15)
  1. NORGESIC [ORPHENADRINE CITRATE;PARACETAMOL] [Concomitant]
     Dosage: 1 UNK
     Dates: start: 2014, end: 20210519
  2. IMIGRAN [SUMATRIPTAN] [Concomitant]
     Active Substance: SUMATRIPTAN
     Dosage: 50 MILLIGRAM
     Dates: start: 2010, end: 20210519
  3. ERENUMAB [Suspect]
     Active Substance: ERENUMAB
     Indication: MIGRAINE
     Dosage: UNK
     Route: 058
     Dates: start: 20210322
  4. VITAMIN B COMPLEX [Concomitant]
     Active Substance: CYANOCOBALAMIN\DEXPANTHENOL\NIACINAMIDE\PYRIDOXINE HYDROCHLORIDE\RIBOFLAVIN 5^-PHOSPHATE SODIUM\THIAMINE HYDROCHLORIDE\VITAMIN B COMPLEX
     Dosage: 1 UNK
     Dates: start: 202007, end: 20210519
  5. COVID?19 VACCINE [Concomitant]
     Dosage: 0.3 MILLILITER
     Dates: start: 20210512, end: 20210512
  6. TAFIL [ALPRAZOLAM] [Concomitant]
     Dosage: 0.25 MILLIGRAM
     Dates: start: 2018, end: 20210519
  7. VITAMIN D [COLECALCIFEROL] [Concomitant]
     Active Substance: CHOLECALCIFEROL
     Dosage: 2000 INTERNATIONAL UNIT
     Dates: start: 202007, end: 20210519
  8. PROPANOLOL [PROPRANOLOL] [Concomitant]
     Active Substance: PROPRANOLOL HYDROCHLORIDE
     Dosage: 20 MILLIGRAM
     Dates: start: 2007, end: 20210519
  9. TRUXAL [CHLORPROTHIXENE] [Concomitant]
     Active Substance: CHLORPROTHIXENE
     Dosage: 30 MILLIGRAM
     Dates: start: 2018, end: 20210519
  10. PARKODIN [Concomitant]
     Active Substance: ACETAMINOPHEN\CODEINE PHOSPHATE
     Dosage: 1 UNK
     Dates: start: 2019, end: 20210519
  11. AMILORIDE;HYDROCHLOROTHIAZIDE [Concomitant]
     Active Substance: AMILORIDE HYDROCHLORIDE\HYDROCHLOROTHIAZIDE
     Dosage: 1 UNK
     Dates: start: 2007, end: 20210519
  12. IBUPROFEN. [Concomitant]
     Active Substance: IBUPROFEN
     Dosage: 400 MILLIGRAM
     Dates: start: 2005, end: 20210519
  13. PANODIL [Concomitant]
     Active Substance: ACETAMINOPHEN
     Dosage: 500 MILLIGRAM
     Dates: start: 2005, end: 20210519
  14. ERENUMAB [Suspect]
     Active Substance: ERENUMAB
     Dosage: 70 MILLIGRAM
     Route: 058
     Dates: end: 20210517
  15. TREO [Concomitant]
     Active Substance: ASPIRIN\CAFFEINE
     Dosage: 2 UNK
     Dates: start: 2008, end: 20210519

REACTIONS (2)
  - Pancreatitis haemorrhagic [Recovered/Resolved]
  - Cardiac arrest [Fatal]

NARRATIVE: CASE EVENT DATE: 20210519
